FAERS Safety Report 5962487-2 (Version None)
Quarter: 2008Q4

REPORT INFORMATION
  Report Type: 
  Country: None (occurrence: None)
  Receive Date: 20081121
  Receipt Date: 20081102
  Transmission Date: 20090506
  Serious: Yes (Hospitalization, Disabling, Other)
  Sender: FDA-Public Use
  Company Number: US-PFIZER INC-2008085424

PATIENT
  Sex: Female
  Weight: 58.1 kg

DRUGS (15)
  1. DETROL LA [Interacting]
     Indication: HYPERTONIC BLADDER
     Dates: start: 19980101, end: 20070101
  2. CHANTIX [Interacting]
     Indication: SMOKING CESSATION THERAPY
     Route: 048
     Dates: start: 20070101, end: 20081001
  3. NICOTROL [Suspect]
     Indication: SMOKING CESSATION THERAPY
  4. STOOL SOFTENER [Concomitant]
  5. LOVAZA [Concomitant]
  6. MENCALISVIT [Concomitant]
  7. ACETYLSALICYLIC ACID SRT [Concomitant]
  8. MORPHINE [Concomitant]
  9. ADVAIR HFA [Concomitant]
  10. PREMARIN [Concomitant]
  11. BONIVA [Concomitant]
  12. GABAPENTIN [Concomitant]
  13. CRESTOR [Concomitant]
  14. SINGULAIR [Concomitant]
  15. VITAMIN D [Concomitant]

REACTIONS (7)
  - BRONCHITIS [None]
  - CONSTIPATION [None]
  - DIVERTICULITIS [None]
  - DRUG INEFFECTIVE [None]
  - DRUG INTERACTION [None]
  - NAUSEA [None]
  - SYRINGOMYELIA [None]
